FAERS Safety Report 15030179 (Version 3)
Quarter: 2018Q3

REPORT INFORMATION
  Report Type: Spontaneous
  Country: DE (occurrence: DE)
  Receive Date: 20180619
  Receipt Date: 20180817
  Transmission Date: 20181010
  Serious: Yes (Hospitalization)
  Sender: FDA-Public Use
  Company Number: DE-TEVA-2018-DE-907613

PATIENT
  Age: 80 Year
  Sex: Female
  Weight: 85.9 kg

DRUGS (22)
  1. HYDROCHLOROTHIAZIDE. [Suspect]
     Active Substance: HYDROCHLOROTHIAZIDE
     Dosage: 25 MG, 1?0?0?0, TABLETTEN
     Route: 048
  2. CYANOCOBALAMIN. [Concomitant]
     Active Substance: CYANOCOBALAMIN
     Dosage: 1?0?0?0, TABLETTEN
     Route: 048
  3. CORVATON 8MG [Concomitant]
     Dosage: 8 MG, 1?0?1?0, TABLETTEN
     Route: 048
  4. BENFOTIAMIN [Concomitant]
     Dosage: 0?1?0?0, TABLETTEN
     Route: 048
  5. GABAPENTIN. [Concomitant]
     Active Substance: GABAPENTIN
     Dosage: 100 MG, 2?2?0?0, TABLETTEN
     Route: 048
  6. SITAGLIPTIN [Concomitant]
     Active Substance: SITAGLIPTIN
     Dosage: 25 MG, 1?0?0?0, TABLETTEN
     Route: 048
  7. SPIRONOLACTON [Concomitant]
     Active Substance: SPIRONOLACTONE
     Dosage: 50 MG, 1?0?0?0, TABLETTEN
     Route: 048
  8. KALINOR?RETARD P 600MG [Concomitant]
     Dosage: 600 MG, 3?2?2?0, KAPSELN
     Route: 048
  9. INSULIN GLULISIN [Concomitant]
     Dosage: TO BZ, INJECTION/INFUSION SOLUTION
     Route: 058
  10. TORASEMID [Concomitant]
     Active Substance: TORSEMIDE
     Dosage: 100 MG, 1?1?0?0, TABLETTEN
     Route: 048
  11. PHENPROCOUMON [Concomitant]
     Active Substance: PHENPROCOUMON
     Dosage: 3 MG, NACH INR, TABLETTEN
     Route: 048
  12. LEVOTHYROXIN?NATRIUM [Concomitant]
     Active Substance: LEVOTHYROXINE SODIUM
     Dosage: 150 ?G, 1?0?0?0, TABLETTEN
     Route: 048
  13. XIPAMID [Suspect]
     Active Substance: XIPAMIDE
     Dosage: 10 MG, 1?0?0?0, TABLETTEN
     Route: 048
  14. PANTOPRAZOL [Concomitant]
     Active Substance: PANTOPRAZOLE SODIUM
     Dosage: 40 MG, 1?0?0?0, TABLETTEN
     Route: 048
  15. INSULIN GLARGIN [Concomitant]
     Active Substance: INSULIN GLARGINE
     Dosage: 26 IE, 0?0?0?1, INJECTION/INFUSION SOLUTION
     Route: 058
  16. ATORVASTATIN [Concomitant]
     Active Substance: ATORVASTATIN
     Dosage: 40 MG, 0?0?1?0, TABLETTEN
     Route: 048
  17. ACETYLSALICYLSAEURE [Concomitant]
     Active Substance: ASPIRIN
     Dosage: 100 MG, 1?0?0?0, TABLETTEN
     Route: 048
  18. NEBIVOLOL. [Concomitant]
     Active Substance: NEBIVOLOL
     Dosage: 5 MG, 1?0?1?0, TABLETTEN
     Route: 048
  19. ALLOPURINOL. [Concomitant]
     Active Substance: ALLOPURINOL
     Dosage: 100 MG, 1?0?0?0, TABLETTEN
     Route: 048
  20. CALCIUM [Suspect]
     Active Substance: CALCIUM
     Dosage: 600 MG, 1?0?0?0, TABLETTEN
     Route: 048
  21. DIGITOXIN [Concomitant]
     Active Substance: DIGITOXIN
     Dosage: 0.05 MG, 1?0?0?0, TABLETTEN
     Route: 048
  22. CALCITRIOL. [Suspect]
     Active Substance: CALCITRIOL
     Dosage: 0.25 ?G, 1?0?0?0, KAPSELN
     Route: 048

REACTIONS (7)
  - General physical health deterioration [Unknown]
  - Drug prescribing error [Unknown]
  - Hypercalcaemia [Unknown]
  - Gait disturbance [Unknown]
  - Medication monitoring error [Unknown]
  - Acute kidney injury [Unknown]
  - Fatigue [Unknown]
